FAERS Safety Report 18755809 (Version 1)
Quarter: 2021Q1

REPORT INFORMATION
  Report Type: Spontaneous
  Country: US (occurrence: US)
  Receive Date: 20210116
  Receipt Date: 20210116
  Transmission Date: 20210419
  Serious: No
  Sender: FDA-Public Use
  Company Number: None

PATIENT
  Age: 38 Year
  Sex: Female
  Weight: 74.25 kg

DRUGS (8)
  1. DEXTROAMPHET SACCHARAT, AMPHET ASPARTATE, DEXTROAMPHET SULFATE AND AMPHET SULFAT [Concomitant]
     Active Substance: AMPHETAMINE ASPARTATE\AMPHETAMINE SULFATE\DEXTROAMPHETAMINE SACCHARATE\DEXTROAMPHETAMINE SULFATE
  2. NOVOLOG [Concomitant]
     Active Substance: INSULIN ASPART
  3. DEXCOM G6 [Concomitant]
  4. ZINC. [Concomitant]
     Active Substance: ZINC
  5. DEXTROAMPHET SACCHARAT, AMPHET ASPARTATE, DEXTROAMPHET SULFATE AND AMPHET SULFAT [Suspect]
     Active Substance: AMPHETAMINE ASPARTATE\AMPHETAMINE SULFATE\DEXTROAMPHETAMINE SACCHARATE\DEXTROAMPHETAMINE SULFATE
     Indication: ATTENTION DEFICIT HYPERACTIVITY DISORDER
     Dosage: ?          QUANTITY:1 TABLET(S);?
     Route: 048
     Dates: start: 20201228, end: 20210114
  6. INSULIN PUMP [Concomitant]
     Active Substance: DEVICE\INSULIN NOS
  7. VITAMINS  B12,  D,  C,  E [Concomitant]
  8. MULTI [Concomitant]

REACTIONS (10)
  - Product substitution issue [None]
  - Anxiety [None]
  - Disturbance in attention [None]
  - Product quality issue [None]
  - Job dissatisfaction [None]
  - Headache [None]
  - Fatigue [None]
  - Sleep disorder [None]
  - Obsessive-compulsive disorder [None]
  - Decreased appetite [None]
